FAERS Safety Report 7864407-2 (Version None)
Quarter: 2011Q4

REPORT INFORMATION
  Report Type: 
  Country: None (occurrence: None)
  Receive Date: 20111028
  Receipt Date: 20111018
  Transmission Date: 20120403
  Serious: Yes (Other)
  Sender: FDA-Public Use
  Company Number: PHHY2010US30291

PATIENT
  Sex: Male
  Weight: 74.6 kg

DRUGS (5)
  1. VIDAZA [Concomitant]
  2. AZACITIDINE [Concomitant]
  3. TRANSFUSIONS [Concomitant]
  4. CHELATION THERAPY [Concomitant]
  5. EXJADE [Suspect]
     Indication: MYELODYSPLASTIC SYNDROME
     Dosage: 1500 MG, QD
     Route: 048
     Dates: start: 20090630

REACTIONS (20)
  - HEART RATE IRREGULAR [None]
  - SKIN ULCER [None]
  - RIB FRACTURE [None]
  - BLOOD GLUCOSE INCREASED [None]
  - VASCULAR ANOMALY [None]
  - HEPATIC LESION [None]
  - FALL [None]
  - NAUSEA [None]
  - FATIGUE [None]
  - BLOOD CREATININE INCREASED [None]
  - SKIN LESION [None]
  - SERUM FERRITIN INCREASED [None]
  - PERIPHERAL VASCULAR DISORDER [None]
  - MALAISE [None]
  - BLOOD UREA INCREASED [None]
  - HERPES ZOSTER [None]
  - NEURALGIA [None]
  - PAIN [None]
  - ASTHENIA [None]
  - ABDOMINAL DISCOMFORT [None]
